FAERS Safety Report 4537651-X (Version None)
Quarter: 2004Q4

REPORT INFORMATION
  Report Type: 
  Country: None (occurrence: None)
  Receive Date: 20041216
  Receipt Date: 20040129
  Transmission Date: 20050328
  Serious: Yes (Hospitalization)
  Sender: FDA-Public Use
  Company Number: CHPA2004US00600

PATIENT
  Sex: Male

DRUGS (1)
  1. TRANSDERM SCOP [Suspect]
     Indication: MOTION SICKNESS
     Dates: start: 20030101, end: 20030101

REACTIONS (5)
  - DELUSION [None]
  - DISORIENTATION [None]
  - EMOTIONAL DISORDER [None]
  - HALLUCINATION [None]
  - RESTLESSNESS [None]
